FAERS Safety Report 8365376-1 (Version None)
Quarter: 2012Q2

REPORT INFORMATION
  Report Type: 
  Country: None (occurrence: None)
  Receive Date: 20120516
  Receipt Date: 20120502
  Transmission Date: 20120825
  Serious: Yes (Other)
  Sender: FDA-Public Use
  Company Number: US-ALLERGAN-1206274US

PATIENT
  Age: 70 Year
  Sex: Male
  Weight: 132 kg

DRUGS (11)
  1. BOTULINUM TOXIN TYPE A [Suspect]
     Indication: PARKINSON'S DISEASE
     Dosage: 100 UNITS, SINGLE
     Route: 030
     Dates: start: 20120110, end: 20120110
  2. BACLOFEN [Concomitant]
     Indication: PARKINSON'S DISEASE
     Dosage: 10 MG, QID
     Route: 048
  3. SINEMET [Concomitant]
     Indication: PARKINSON'S DISEASE
     Dosage: UNK
     Route: 048
  4. SELELIGINE [Concomitant]
     Indication: PARKINSON'S DISEASE
     Dosage: UNK
  5. LIPITOR [Concomitant]
     Indication: BLOOD CHOLESTEROL INCREASED
     Dosage: 10 MG, UNK
     Route: 048
  6. MIRAPEX [Concomitant]
     Indication: PARKINSON'S DISEASE
     Dosage: UNK
     Route: 048
  7. MULTI-VITAMINS [Concomitant]
     Indication: NUTRITIONAL SUPPORT
     Dosage: UNK
     Route: 048
  8. CALCIUM [Concomitant]
     Indication: NUTRITIONAL SUPPORT
     Dosage: UNK
     Route: 048
  9. COMTAN [Concomitant]
     Indication: PARKINSON'S DISEASE
     Dosage: 200 MG, QID
     Route: 048
  10. ALBUTEROL [Concomitant]
     Indication: PRODUCT USED FOR UNKNOWN INDICATION
     Dosage: UNK
     Route: 055
  11. ASPIRIN [Concomitant]
     Indication: PRODUCT USED FOR UNKNOWN INDICATION
     Dosage: 81 UNK, UNK
     Route: 048

REACTIONS (5)
  - DYSKINESIA [None]
  - DYSPHAGIA [None]
  - WEIGHT DECREASED [None]
  - SALIVARY HYPERSECRETION [None]
  - TONGUE PARALYSIS [None]
